FAERS Safety Report 9494091 (Version 1)
Quarter: 2013Q3

REPORT INFORMATION
  Report Type: Spontaneous
  Country: IT (occurrence: None)
  Receive Date: 20130827
  Receipt Date: 20130827
  Transmission Date: 20140515
  Serious: Yes (Hospitalization, Other)
  Sender: FDA-Public Use
  Company Number: 2013AP007465

PATIENT
  Age: 28 Year
  Sex: Male

DRUGS (2)
  1. LEVOFLOXACIN (LEVOFLOXACIN) [Suspect]
     Indication: BRONCHOPNEUMONIA
     Route: 048
  2. PIPERACILLIN W/TAZOBACTAM /01606301/ (PIPERACILLIN W/TAZOBACTAM /01606301/) [Concomitant]

REACTIONS (9)
  - Kounis syndrome [None]
  - Dyspnoea [None]
  - Pyrexia [None]
  - Hypoxia [None]
  - Urticaria [None]
  - Pruritus [None]
  - Angioedema [None]
  - Stridor [None]
  - Myocardial ischaemia [None]
